FAERS Safety Report 4487821-4 (Version None)
Quarter: 2004Q4

REPORT INFORMATION
  Report Type: 
  Country: None (occurrence: None)
  Receive Date: 20041027
  Receipt Date: 20041027
  Transmission Date: 20050328
  Serious: Yes (Other)
  Sender: FDA-Public Use
  Company Number: None

PATIENT
  Age: 58 Year
  Sex: Female
  Weight: 74.8435 kg

DRUGS (2)
  1. ARANESP [Suspect]
     Dosage: 200 MCG SQ QOW
     Dates: start: 20040909
  2. ARANESP [Suspect]
     Dosage: 200 MCG SQ QOW
     Dates: start: 20040923

REACTIONS (4)
  - DRUG INEFFECTIVE [None]
  - PRURITUS [None]
  - RASH [None]
  - URTICARIA [None]
